FAERS Safety Report 9217515 (Version 1)
Quarter: 2013Q2

REPORT INFORMATION
  Report Type: Report from Study
  Country: VE (occurrence: VE)
  Receive Date: 20130408
  Receipt Date: 20130408
  Transmission Date: 20140414
  Serious: Yes (Death)
  Sender: FDA-Public Use
  Company Number: VE-ROCHE-1211374

PATIENT
  Age: 48 Year
  Sex: Female
  Weight: 80 kg

DRUGS (3)
  1. XELODA [Suspect]
     Indication: GASTRIC CANCER
     Route: 048
     Dates: start: 20130205, end: 20130314
  2. OXALIPLATIN [Concomitant]
     Indication: GASTRIC CANCER
     Route: 065
     Dates: start: 20130205, end: 20130314
  3. EPIRUBICIN [Concomitant]
     Indication: GASTRIC CANCER
     Route: 065
     Dates: start: 20130205, end: 20130314

REACTIONS (1)
  - Death [Fatal]
